FAERS Safety Report 4687100-6 (Version None)
Quarter: 2005Q2

REPORT INFORMATION
  Report Type: 
  Country: None (occurrence: None)
  Receive Date: 20050608
  Receipt Date: 20050525
  Transmission Date: 20051028
  Serious: Yes (Disabling, Other)
  Sender: FDA-Public Use
  Company Number: 2005011082

PATIENT
  Sex: Female

DRUGS (1)
  1. ZYRTEC [Suspect]
     Indication: CHOKING

REACTIONS (3)
  - ANTIPHOSPHOLIPID ANTIBODIES POSITIVE [None]
  - ARTHRALGIA [None]
  - EPILEPSY [None]
